FAERS Safety Report 4363836-1 (Version None)
Quarter: 2004Q2

REPORT INFORMATION
  Report Type: 
  Country: None (occurrence: None)
  Receive Date: 20040521
  Receipt Date: 20040427
  Transmission Date: 20050107
  Serious: Yes (Hospitalization)
  Sender: FDA-Public Use
  Company Number: 2004-01784

PATIENT
  Age: 71 Year
  Sex: Male

DRUGS (1)
  1. IMMUCYST (BCG - IT (CONNAUGHT)), AVENTIS PASTEUR LTD., LOT NOT REP, NR [Suspect]
     Indication: BLADDER CANCER
     Dosage: 81 MG (81.0 MG) B.IN., BLADDER
     Dates: start: 20040224, end: 20040413

REACTIONS (1)
  - RENAL FAILURE [None]
